FAERS Safety Report 11695690 (Version 1)
Quarter: 2015Q4

REPORT INFORMATION
  Report Type: Report from Study
  Country: US (occurrence: US)
  Receive Date: 20151104
  Receipt Date: 20151104
  Transmission Date: 20160304
  Serious: Yes (Other)
  Sender: FDA-Public Use
  Company Number: US-AMGEN-USASL2015113892

PATIENT
  Age: 46 Year
  Sex: Female

DRUGS (2)
  1. ENBREL [Suspect]
     Active Substance: ETANERCEPT
     Indication: RHEUMATOID ARTHRITIS
     Dosage: UNK UNK, 2 TIMES/WK
     Route: 065
     Dates: start: 2006
  2. ORENCIA [Suspect]
     Active Substance: ABATACEPT
     Indication: PRODUCT USED FOR UNKNOWN INDICATION
     Dosage: UNK
     Route: 065

REACTIONS (16)
  - Blood disorder [Unknown]
  - Pyrexia [Unknown]
  - Nasopharyngitis [Unknown]
  - Pain in jaw [Unknown]
  - Muscle twitching [Unknown]
  - Hypoaesthesia [Unknown]
  - Heavy exposure to ultraviolet light [Unknown]
  - Headache [Unknown]
  - Chronic tonsillitis [Unknown]
  - Amnesia [Unknown]
  - Lymphadenopathy [Unknown]
  - Facial pain [Unknown]
  - Ear pain [Unknown]
  - Pain [Unknown]
  - Red blood cell sedimentation rate increased [Unknown]
  - Malaise [Unknown]

NARRATIVE: CASE EVENT DATE: 2012
